FAERS Safety Report 11638721 (Version 1)
Quarter: 2015Q4

REPORT INFORMATION
  Report Type: Report from Study
  Country: US (occurrence: US)
  Receive Date: 20151016
  Receipt Date: 20151016
  Transmission Date: 20160304
  Serious: Yes (Death)
  Sender: FDA-Public Use
  Company Number: US-ASTRAZENECA-2015SE99552

PATIENT
  Age: 19 Year
  Sex: Female

DRUGS (6)
  1. NORDAZEPAM [Suspect]
     Active Substance: NORDAZEPAM
     Route: 065
  2. QUETIAPINE [Suspect]
     Active Substance: QUETIAPINE
     Route: 048
  3. ETHANOL [Suspect]
     Active Substance: ALCOHOL
     Route: 065
  4. TETRAHYDROCANNABINOL [Suspect]
     Active Substance: DRONABINOL
     Dosage: TCH-COOH
     Route: 065
  5. DIAZEPAM. [Suspect]
     Active Substance: DIAZEPAM
     Route: 065
  6. TETRAHYDROCANNABINOL [Suspect]
     Active Substance: DRONABINOL
     Route: 065

REACTIONS (2)
  - Completed suicide [Fatal]
  - Toxicity to various agents [Fatal]
